FAERS Safety Report 8929960 (Version 4)
Quarter: 2013Q1

REPORT INFORMATION
  Report Type: Report from Study
  Country: CA (occurrence: CA)
  Receive Date: 20121128
  Receipt Date: 20130307
  Transmission Date: 20140127
  Serious: Yes (Other)
  Sender: FDA-Public Use
  Company Number: CA-ROCHE-1088539

PATIENT
  Sex: Female

DRUGS (5)
  1. ZELBORAF [Suspect]
     Indication: METASTATIC MALIGNANT MELANOMA
     Route: 048
     Dates: start: 201205, end: 201302
  2. ELAVIL (CANADA) [Concomitant]
  3. ATIVAN [Concomitant]
  4. CALCIUM [Concomitant]
  5. VITAMIN D3 [Concomitant]

REACTIONS (11)
  - Neoplasm [Unknown]
  - Rash pruritic [Unknown]
  - Nausea [Recovered/Resolved]
  - Diarrhoea [Recovered/Resolved]
  - Asthenia [Unknown]
  - Asthenia [Unknown]
  - Weight decreased [Unknown]
  - Alopecia [Unknown]
  - Drug effect decreased [Unknown]
  - Macule [Unknown]
  - Mass [Recovered/Resolved]
